FAERS Safety Report 18782604 (Version 1)
Quarter: 2021Q1

REPORT INFORMATION
  Report Type: Spontaneous
  Country: US (occurrence: US)
  Receive Date: 20210125
  Receipt Date: 20210125
  Transmission Date: 20210419
  Serious: No
  Sender: FDA-Public Use
  Company Number: US-ALLERGAN-2024532US

PATIENT
  Age: 64 Year
  Sex: Female

DRUGS (4)
  1. RESTASIS [Suspect]
     Active Substance: CYCLOSPORINE
     Indication: DRY EYE
     Dosage: 2 GTT, (1 DROP IN BOTH EYES) BID
     Route: 047
     Dates: start: 20200623
  2. ATORVASTATIN [Concomitant]
     Active Substance: ATORVASTATIN
  3. CYMBALTA [Concomitant]
     Active Substance: DULOXETINE HYDROCHLORIDE
  4. LISINOPRIL. [Concomitant]
     Active Substance: LISINOPRIL

REACTIONS (1)
  - Multiple use of single-use product [Unknown]

NARRATIVE: CASE EVENT DATE: 20200624
